FAERS Safety Report 8621780 (Version 4)
Quarter: 2013Q1

REPORT INFORMATION
  Report Type: Spontaneous
  Country: US (occurrence: US)
  Receive Date: 20120619
  Receipt Date: 20130313
  Transmission Date: 20140127
  Serious: Yes (Other)
  Sender: FDA-Public Use
  Company Number: PHEH2012US012049

PATIENT
  Sex: Female

DRUGS (3)
  1. DIOVAN HCT [Suspect]
     Dosage: 1 DF (320 MG VALS AND 25 MG HYDRO),
  2. METFORMIN [Concomitant]
  3. INSULIN [Concomitant]

REACTIONS (4)
  - Insulin resistant diabetes [Unknown]
  - Thirst [Unknown]
  - Skin wrinkling [Unknown]
  - Myopia [Unknown]
